FAERS Safety Report 5594783-5 (Version None)
Quarter: 2008Q1

REPORT INFORMATION
  Report Type: 
  Country: None (occurrence: None)
  Receive Date: 20080117
  Receipt Date: 20080111
  Transmission Date: 20080703
  Serious: Yes (Hospitalization)
  Sender: FDA-Public Use
  Company Number: A0703688A

PATIENT
  Age: 57 Year
  Sex: Female

DRUGS (3)
  1. TOPOTECAN [Suspect]
     Indication: OVARIAN CANCER
     Dosage: .8MG CYCLIC
     Route: 042
     Dates: start: 20071110, end: 20071122
  2. INVESTIGATIONAL DRUG [Suspect]
     Indication: OVARIAN CANCER
     Dosage: 10MG TWICE PER DAY
     Route: 048
     Dates: start: 20071118, end: 20071124
  3. MECLIZINE [Concomitant]

REACTIONS (4)
  - DEHYDRATION [None]
  - LEUKOPENIA [None]
  - ORAL INTAKE REDUCED [None]
  - VERTIGO [None]
